FAERS Safety Report 8666902 (Version 2)
Quarter: 2014Q1

REPORT INFORMATION
  Report Type: Report from Study
  Country: US (occurrence: US)
  Receive Date: 20120716
  Receipt Date: 20140215
  Transmission Date: 20141002
  Serious: Yes (Other)
  Sender: FDA-Public Use
  Company Number: US-ROCHE-1086171

PATIENT
  Sex: 0

DRUGS (7)
  1. VALGANCICLOVIR [Suspect]
     Indication: ANTIVIRAL PROPHYLAXIS
     Route: 048
  2. MYCOPHENOLATE MOFETIL [Suspect]
     Indication: IMMUNOSUPPRESSION
     Route: 048
  3. BASILIXIMAB [Suspect]
     Indication: IMMUNOSUPPRESSION
     Route: 065
  4. TACROLIMUS [Suspect]
     Indication: IMMUNOSUPPRESSION
     Dosage: FIRST 3 MONTHS 14 NG/ML
     Route: 065
  5. TACROLIMUS [Suspect]
     Dosage: THEREAFTER ADJUSTED TO 8-12 NG/ML
     Route: 065
  6. PREDNISONE [Suspect]
     Indication: IMMUNOSUPPRESSION
     Route: 065
  7. PREDNISONE [Suspect]
     Dosage: BY 2 YEARS POST TRANSPLANT
     Route: 065

REACTIONS (7)
  - Cytomegalovirus infection [Unknown]
  - Cytomegalovirus infection [Unknown]
  - Neuropathy peripheral [Unknown]
  - Viral infection [Unknown]
  - Leukopenia [Unknown]
  - Bacterial infection [Unknown]
  - Fungal infection [Unknown]
